FAERS Safety Report 8885911 (Version 2)
Quarter: 2012Q4

REPORT INFORMATION
  Report Type: 
  Country: DE (occurrence: DE)
  Receive Date: 20121102
  Receipt Date: 20121119
  Transmission Date: 20130627
  Serious: Yes (Other)
  Sender: FDA-Public Use
  Company Number: DE-JNJFOC-20121017656

PATIENT
  Age: 70 Year
  Sex: Female
  Weight: 60 kg

DRUGS (6)
  1. REGAINE FRAUEN [Suspect]
     Route: 061
  2. REGAINE FRAUEN [Suspect]
     Indication: ALOPECIA
     Dosage: used for about a week
     Route: 061
     Dates: start: 20121019, end: 20121019
  3. TIM-OPHTAL [Concomitant]
     Indication: GLAUCOMA
     Route: 047
  4. LISINOPRIL [Concomitant]
     Indication: HYPERTENSION
     Route: 048
  5. UNKNOWN MEDICATION [Concomitant]
     Route: 048
  6. AUGENTROPFEN [Concomitant]

REACTIONS (5)
  - Cardiac disorder [Recovered/Resolved]
  - Dyspnoea [Recovered/Resolved]
  - Tachycardia [Recovered/Resolved]
  - Application site pain [Recovered/Resolved]
  - Application site pruritus [Recovered/Resolved]
